FAERS Safety Report 14232014 (Version 1)
Quarter: 2017Q4

REPORT INFORMATION
  Report Type: Spontaneous
  Country: US (occurrence: US)
  Receive Date: 20171128
  Receipt Date: 20171128
  Transmission Date: 20180321
  Serious: No
  Sender: FDA-Public Use
  Company Number: US-LEADIANT BIOSCIENCES INC-2016STPI000992

PATIENT
  Sex: Male

DRUGS (1)
  1. MATULANE [Suspect]
     Active Substance: PROCARBAZINE HYDROCHLORIDE
     Indication: NON-HODGKIN^S LYMPHOMA
     Dosage: 50 MG, 2 CAPSULES FOR 5 DAYS WITH EACH CHEMO CYCLE AND 3 CAPSULES TO USE AT HOME
     Route: 048
     Dates: start: 20160926

REACTIONS (1)
  - Fatigue [Not Recovered/Not Resolved]
